FAERS Safety Report 9717005 (Version 2)
Quarter: 2015Q3

REPORT INFORMATION
  Report Type: Spontaneous
  Country: US (occurrence: US)
  Receive Date: 20131127
  Receipt Date: 20150803
  Transmission Date: 20151125
  Serious: No
  Sender: FDA-Public Use
  Company Number: US-GILEAD-2009-0020253

PATIENT
  Sex: Female
  Weight: 70.76 kg

DRUGS (9)
  1. LETAIRIS [Suspect]
     Active Substance: AMBRISENTAN
     Indication: PULMONARY ARTERIAL HYPERTENSION
  2. DIOVAN HCT [Concomitant]
     Active Substance: HYDROCHLOROTHIAZIDE\VALSARTAN
  3. ASPIRIN. [Concomitant]
     Active Substance: ASPIRIN
  4. METAMUCIL [Concomitant]
     Active Substance: PLANTAGO SEED
  5. PEPTOBISMOL [Concomitant]
  6. XOPENEX [Concomitant]
     Active Substance: LEVALBUTEROL HYDROCHLORIDE
  7. PREDNISONE. [Concomitant]
     Active Substance: PREDNISONE
  8. CALCIUM [Concomitant]
     Active Substance: CALCIUM
     Route: 048
  9. COREG [Concomitant]
     Active Substance: CARVEDILOL

REACTIONS (2)
  - Haemoglobin decreased [Not Recovered/Not Resolved]
  - Oedema [Not Recovered/Not Resolved]
